FAERS Safety Report 17201577 (Version 1)
Quarter: 2019Q4

REPORT INFORMATION
  Report Type: Spontaneous
  Country: CA (occurrence: CA)
  Receive Date: 20191220
  Receipt Date: 20191220
  Transmission Date: 20200122
  Serious: Yes (Other)
  Sender: FDA-Public Use
  Company Number: None

PATIENT
  Age: 50 Year
  Sex: Female
  Weight: 90 kg

DRUGS (1)
  1. UDREAM [HERBALS] [Suspect]
     Active Substance: HERBALS
     Indication: SLEEP DISORDER THERAPY
     Route: 048
     Dates: start: 20190708, end: 20191213

REACTIONS (4)
  - Affective disorder [None]
  - Impaired work ability [None]
  - Insomnia [None]
  - Withdrawal syndrome [None]

NARRATIVE: CASE EVENT DATE: 20191213
